FAERS Safety Report 21173937 (Version 1)
Quarter: 2022Q3

REPORT INFORMATION
  Report Type: Spontaneous
  Country: US (occurrence: US)
  Receive Date: 20220804
  Receipt Date: 20220804
  Transmission Date: 20221027
  Serious: No
  Sender: FDA-Public Use
  Company Number: US-ABBVIE-22K-163-4454124-00

PATIENT
  Age: 56 Year
  Sex: Male
  Weight: 84.444 kg

DRUGS (2)
  1. DEPAKOTE ER [Suspect]
     Active Substance: DIVALPROEX SODIUM
     Indication: Seizure
     Route: 048
     Dates: start: 202206
  2. DEPAKOTE ER [Suspect]
     Active Substance: DIVALPROEX SODIUM
     Indication: Headache

REACTIONS (9)
  - Musculoskeletal disorder [Unknown]
  - Facial paralysis [Unknown]
  - Pain [Unknown]
  - Screaming [Unknown]
  - Hemiplegia [Unknown]
  - Drug ineffective [Unknown]
  - Anger [Unknown]
  - Headache [Unknown]
  - Contrast media reaction [Unknown]

NARRATIVE: CASE EVENT DATE: 20220601
